FAERS Safety Report 9476737 (Version 1)
Quarter: 2013Q3

REPORT INFORMATION
  Report Type: Spontaneous
  Country: US (occurrence: US)
  Receive Date: 20130826
  Receipt Date: 20130826
  Transmission Date: 20140515
  Serious: No
  Sender: FDA-Public Use
  Company Number: US-BRISTOL-MYERS SQUIBB COMPANY-18595744

PATIENT
  Age: 58 Year
  Sex: Female
  Weight: 95.24 kg

DRUGS (13)
  1. KENALOG-40 INJ [Suspect]
     Indication: BACK PAIN
     Route: 008
     Dates: start: 20130313
  2. SYNTHROID [Concomitant]
  3. PREMARIN [Concomitant]
  4. BENICAR [Concomitant]
  5. MOBIC [Concomitant]
  6. NEXIUM [Concomitant]
  7. ROBAXIN [Concomitant]
  8. ESGIC [Concomitant]
  9. ESTRACE [Concomitant]
  10. BYSTOLIC [Concomitant]
  11. PERCOCET [Concomitant]
  12. AMLODIPINE [Concomitant]
  13. NAPROXEN [Concomitant]

REACTIONS (1)
  - Flushing [Recovering/Resolving]
